FAERS Safety Report 8217755 (Version 7)
Quarter: 2015Q4

REPORT INFORMATION
  Report Type: Spontaneous
  Country: US (occurrence: US)
  Receive Date: 20111101
  Receipt Date: 20151023
  Transmission Date: 20160305
  Serious: Yes (Hospitalization, Congenital Anomaly, Other)
  Sender: FDA-Public Use
  Company Number: US-GLAXOSMITHKLINE-A0951261A

PATIENT
  Age: 0 Day
  Sex: Male
  Weight: 2.5 kg

DRUGS (4)
  1. PRENATAL VITAMINS [Concomitant]
     Active Substance: VITAMINS
     Route: 064
  2. PAXIL [Suspect]
     Active Substance: PAROXETINE HYDROCHLORIDE
     Indication: ANXIETY
     Dosage: 20 MG, 1D
     Route: 064
  3. XANAX [Concomitant]
     Active Substance: ALPRAZOLAM
  4. PAXIL [Suspect]
     Active Substance: PAROXETINE HYDROCHLORIDE
     Indication: DEPRESSION

REACTIONS (11)
  - Fine motor delay [Unknown]
  - Attention deficit/hyperactivity disorder [Unknown]
  - Anxiety [Unknown]
  - Learning disability [Unknown]
  - Drug withdrawal syndrome [Unknown]
  - Speech disorder developmental [Unknown]
  - Pulmonary hypertension [Unknown]
  - Patent ductus arteriosus [Unknown]
  - Anomalous pulmonary venous connection [Unknown]
  - Tourette^s disorder [Unknown]
  - Foetal exposure during pregnancy [Unknown]

NARRATIVE: CASE EVENT DATE: 20000530
